FAERS Safety Report 23024644 (Version 1)
Quarter: 2023Q4

REPORT INFORMATION
  Report Type: Spontaneous
  Country: US (occurrence: None)
  Receive Date: 20231004
  Receipt Date: 20231004
  Transmission Date: 20240110
  Serious: No
  Sender: FDA-Public Use
  Company Number: 2023A218333

PATIENT
  Sex: Male

DRUGS (2)
  1. SEROQUEL XR [Suspect]
     Active Substance: QUETIAPINE FUMARATE
     Route: 048
  2. SEROQUEL [Suspect]
     Active Substance: QUETIAPINE FUMARATE
     Route: 048

REACTIONS (7)
  - Mental status changes [Unknown]
  - Drug hypersensitivity [Unknown]
  - Tardive dyskinesia [Unknown]
  - Hypersensitivity [Unknown]
  - Drug ineffective [Unknown]
  - Product use issue [Unknown]
  - Product dose omission issue [Unknown]
